FAERS Safety Report 12481710 (Version 3)
Quarter: 2016Q3

REPORT INFORMATION
  Report Type: Report from Study
  Country: CA (occurrence: CA)
  Receive Date: 20160620
  Receipt Date: 20160922
  Transmission Date: 20161109
  Serious: Yes (Other)
  Sender: FDA-Public Use
  Company Number: PHHY2016CA021292

PATIENT
  Age: 72 Year
  Sex: Female

DRUGS (7)
  1. CRESTOR [Concomitant]
     Active Substance: ROSUVASTATIN CALCIUM
     Indication: DIABETES MELLITUS
     Dosage: 40 MG, QD (DAILY)
     Route: 065
  2. INSULIN [Concomitant]
     Active Substance: INSULIN NOS
     Dosage: 10 U, UNK
     Route: 065
  3. CHLOR-TRIPOLON [Concomitant]
     Active Substance: LORATADINE
     Indication: SEASONAL ALLERGY
     Route: 065
  4. INSULIN [Concomitant]
     Active Substance: INSULIN NOS
     Indication: PRODUCT USED FOR UNKNOWN INDICATION
     Route: 065
  5. SANDOSTATIN LAR DEPOT [Suspect]
     Active Substance: OCTREOTIDE ACETATE
     Indication: CARCINOID TUMOUR
     Dosage: 20 MG, QMO (EVERY 4 WEEKS)
     Route: 030
     Dates: start: 20160210
  6. CHLOR-TRIPOLON [Concomitant]
     Active Substance: LORATADINE
     Indication: DUST ALLERGY
  7. METOPROLOL. [Concomitant]
     Active Substance: METOPROLOL
     Indication: PRODUCT USED FOR UNKNOWN INDICATION
     Dosage: 25 MG, BID
     Route: 065

REACTIONS (19)
  - Loss of consciousness [Unknown]
  - Fear of disease [Unknown]
  - Injection site haemorrhage [Unknown]
  - Frequent bowel movements [Unknown]
  - Blood glucose decreased [Unknown]
  - Injection site pain [Unknown]
  - Nasopharyngitis [Unknown]
  - Headache [Unknown]
  - Dizziness [Unknown]
  - Pain [Recovered/Resolved]
  - Pyrexia [Unknown]
  - Anxiety [Unknown]
  - Cold sweat [Unknown]
  - Decreased appetite [Recovering/Resolving]
  - Asthenia [Unknown]
  - Diarrhoea [Unknown]
  - Rhinorrhoea [Unknown]
  - Hyperchlorhydria [Unknown]
  - Tremor [Unknown]

NARRATIVE: CASE EVENT DATE: 20160210
